FAERS Safety Report 11092486 (Version 1)
Quarter: 2015Q2

REPORT INFORMATION
  Report Type: Spontaneous
  Country: US (occurrence: None)
  Receive Date: 20150505
  Receipt Date: 20150505
  Transmission Date: 20150821
  Serious: No
  Sender: FDA-Public Use
  Company Number: None

PATIENT
  Age: 41 Year
  Sex: Female
  Weight: 145.15 kg

DRUGS (4)
  1. SPRING VALLEY D3 [Concomitant]
  2. SYNTHROID [Concomitant]
     Active Substance: LEVOTHYROXINE SODIUM
  3. METFORMIN HCL ER [Concomitant]
  4. BUPROPION HCL XL [Suspect]
     Active Substance: BUPROPION HYDROCHLORIDE
     Indication: DEPRESSION
     Route: 048
     Dates: start: 20141218, end: 20150502

REACTIONS (3)
  - Poor quality sleep [None]
  - Fatigue [None]
  - Nightmare [None]

NARRATIVE: CASE EVENT DATE: 20150503
